FAERS Safety Report 6403191-6 (Version None)
Quarter: 2009Q4

REPORT INFORMATION
  Report Type: 
  Country: None (occurrence: None)
  Receive Date: 20091015
  Receipt Date: 20091015
  Transmission Date: 20100525
  Serious: No
  Sender: FDA-Public Use
  Company Number: None

PATIENT
  Age: 7 Year
  Sex: Female
  Weight: 22.2263 kg

DRUGS (1)
  1. SINGULAIR [Suspect]
     Indication: ASTHMA
     Dosage: 5 MGS 1 X DAY ORAL BUT ONLY TOOK 5 MG DOSE 3 WEEKS
     Route: 048
     Dates: start: 19970101, end: 20090101

REACTIONS (5)
  - HALLUCINATION [None]
  - NIGHTMARE [None]
  - OBSESSIVE THOUGHTS [None]
  - STRESS [None]
  - TOURETTE'S DISORDER [None]
